FAERS Safety Report 4848623-X (Version None)
Quarter: 2005Q4

REPORT INFORMATION
  Report Type: 
  Country: None (occurrence: None)
  Receive Date: 20051206
  Receipt Date: 20051124
  Transmission Date: 20060501
  Serious: Yes (Other)
  Sender: FDA-Public Use
  Company Number: 2005143717

PATIENT
  Age: 78 Year
  Sex: Male
  Weight: 74.8435 kg

DRUGS (10)
  1. ATORVASTATIN CALCIUM [Suspect]
     Indication: LOW DENSITY LIPOPROTEIN INCREASED
     Dosage: 80 MG (80 MG, DAILY), ORAL
     Route: 048
     Dates: start: 20010801
  2. EZETIMIBE (EZETIMIBE) [Suspect]
     Indication: LOW DENSITY LIPOPROTEIN INCREASED
     Dosage: 10 MG (10 MG, DAILY), ORAL
     Route: 048
     Dates: start: 20030901
  3. ALTACE [Concomitant]
  4. ATROVENT [Concomitant]
  5. WARFARIN SODIUM [Concomitant]
  6. DIDROCAL (CALCIUM CARBONATE, ETIDRONATE DISODIUM) [Concomitant]
  7. FLOVENT [Concomitant]
  8. LASIX [Concomitant]
  9. METOPROLOL (METOPROLOL) [Concomitant]
  10. NORVASC [Concomitant]

REACTIONS (3)
  - AMNESIA [None]
  - CONFUSIONAL STATE [None]
  - DISORIENTATION [None]
